FAERS Safety Report 11524253 (Version 1)
Quarter: 2015Q3

REPORT INFORMATION
  Report Type: Spontaneous
  Country: US (occurrence: US)
  Receive Date: 20150918
  Receipt Date: 20150918
  Transmission Date: 20151125
  Serious: Yes (Death, Hospitalization)
  Sender: FDA-Public Use
  Company Number: US-ROCHE-719524

PATIENT
  Age: 48 Year
  Sex: Female

DRUGS (2)
  1. PEGASYS [Suspect]
     Active Substance: PEGINTERFERON ALFA-2A
     Indication: HEPATITIS C
     Dosage: RECEIVED 32 WEEKS TREATMENT.
     Route: 065
  2. RIBAVIRIN. [Suspect]
     Active Substance: RIBAVIRIN
     Indication: HEPATITIS C
     Dosage: RECEIVED 32 WEEKS TREATMENT.
     Route: 065

REACTIONS (3)
  - Cerebellar haemorrhage [Fatal]
  - Thrombocytopenia [Unknown]
  - Immune thrombocytopenic purpura [Unknown]
